FAERS Safety Report 10745552 (Version 1)
Quarter: 2015Q1

REPORT INFORMATION
  Report Type: Report from Study
  Country: KR (occurrence: KR)
  Receive Date: 20150128
  Receipt Date: 20150128
  Transmission Date: 20150721
  Serious: Yes (Death)
  Sender: FDA-Public Use
  Company Number: KR-BAYER-2015-011294

PATIENT
  Age: 38 Year
  Sex: Male
  Weight: 55.4 kg

DRUGS (15)
  1. NEXAVAR [Suspect]
     Active Substance: SORAFENIB
     Indication: HEPATOCELLULAR CARCINOMA
     Dosage: DAILY DOSE 800 MG
     Route: 048
     Dates: start: 20140307, end: 20140309
  2. GODEX [Concomitant]
     Indication: PROPHYLAXIS
     Dosage: DAILY DOSE 3 CAPSULE
     Dates: start: 20140216, end: 20140309
  3. OXYCODONE [Concomitant]
     Active Substance: OXYCODONE
     Indication: PAIN MANAGEMENT
     Dosage: DAILY DOSE 30 MG
     Dates: start: 20140116, end: 20140424
  4. NORMIX [Concomitant]
     Active Substance: RIFAXIMIN
     Indication: PROPHYLAXIS
     Dosage: DAILY DOSE 600 MG
     Dates: start: 20140307, end: 20140413
  5. TYLENOL [Concomitant]
     Active Substance: ACETAMINOPHEN
     Indication: PROPHYLAXIS
     Dosage: DAILY DOSE 320 MG
     Dates: start: 20140307, end: 20140307
  6. MONILAC [Concomitant]
     Active Substance: LACTULOSE
     Indication: CONSTIPATION PROPHYLAXIS
     Dosage: DAILY DOSE 50 ML
     Dates: start: 20140308, end: 20140318
  7. PROPACETAMOL HYDROCHLORIDE [Concomitant]
     Active Substance: PROPACETAMOL HYDROCHLORIDE
     Indication: PYREXIA
     Dosage: DAILY DOSE .5 G
     Dates: start: 20140310, end: 20140310
  8. URSA [Concomitant]
     Indication: PROPHYLAXIS
     Dosage: DAILY DOSE 600 MG
     Dates: start: 20140216, end: 20140424
  9. TARGIN [Concomitant]
     Active Substance: NALOXONE HYDROCHLORIDE\OXYCODONE HYDROCHLORIDE
     Indication: PAIN MANAGEMENT
     Dosage: DAILY DOSE 40 MG
     Dates: start: 20140210, end: 20140324
  10. METOCLOPRAMIDE. [Concomitant]
     Active Substance: METOCLOPRAMIDE
     Indication: PROPHYLAXIS OF NAUSEA AND VOMITING
     Dosage: DAILY DOSE 5 MG
     Dates: start: 20140307, end: 20140407
  11. MAGNESIUM OXIDE. [Concomitant]
     Active Substance: MAGNESIUM OXIDE
     Indication: CONSTIPATION PROPHYLAXIS
     Dosage: DAILY DOSE 1000 MG
     Dates: start: 20140127, end: 20140313
  12. MEGACE [Concomitant]
     Active Substance: MEGESTROL ACETATE
     Indication: DECREASED APPETITE
     Dosage: DAILY DOSE 800 MG
     Dates: start: 20140228, end: 20140309
  13. PANTOLOC [Concomitant]
     Active Substance: PANTOPRAZOLE SODIUM
     Indication: PROPHYLAXIS
     Dosage: DAILY DOSE 40 MG
     Dates: start: 20140118, end: 20140309
  14. TARGIN [Concomitant]
     Active Substance: NALOXONE HYDROCHLORIDE\OXYCODONE HYDROCHLORIDE
     Indication: PAIN MANAGEMENT
     Dosage: DAILY DOSE 80 MG
     Dates: start: 20140210, end: 20140324
  15. ZOFRAN [Concomitant]
     Active Substance: ONDANSETRON HYDROCHLORIDE
     Indication: PROPHYLAXIS OF NAUSEA AND VOMITING
     Dosage: DAILY DOSE 4 MG
     Dates: start: 20140307, end: 20140327

REACTIONS (1)
  - Hepatic cancer [Fatal]

NARRATIVE: CASE EVENT DATE: 20140403
